FAERS Safety Report 5081522-X (Version None)
Quarter: 2006Q3

REPORT INFORMATION
  Report Type: 
  Country: None (occurrence: None)
  Receive Date: 20060815
  Receipt Date: 20060815
  Transmission Date: 20061208
  Serious: Yes (Hospitalization)
  Sender: FDA-Public Use
  Company Number: None

PATIENT
  Age: 49 Year
  Sex: Male
  Weight: 174.6 kg

DRUGS (1)
  1. WARFARIN SODIUM [Suspect]
     Indication: ATRIAL FIBRILLATION
     Dosage: 7.5 MG QD PO [SEVERAL YEARS]
     Route: 048

REACTIONS (2)
  - CARDIAC PACEMAKER REPLACEMENT [None]
  - INTERNATIONAL NORMALISED RATIO INCREASED [None]
